FAERS Safety Report 15272122 (Version 1)
Quarter: 2018Q3

REPORT INFORMATION
  Report Type: Spontaneous
  Country: CA (occurrence: CA)
  Receive Date: 20180813
  Receipt Date: 20180813
  Transmission Date: 20181010
  Serious: Yes (Other)
  Sender: FDA-Public Use
  Company Number: CA-SA-2018SA145865

PATIENT
  Age: 67 Year
  Sex: Female

DRUGS (4)
  1. TAMOXIFEN [Concomitant]
     Active Substance: TAMOXIFEN
  2. LEVOTHYROXINE. [Suspect]
     Active Substance: LEVOTHYROXINE
     Indication: HYPOTHYROIDISM
  3. CHLOROQUINE. [Suspect]
     Active Substance: CHLOROQUINE
     Dosage: 250 MG, QD
     Route: 048
  4. CHLOROQUINE. [Suspect]
     Active Substance: CHLOROQUINE
     Indication: PORPHYRIA NON-ACUTE
     Dosage: 125 MG, BIW
     Route: 048

REACTIONS (1)
  - Vitiligo [Recovering/Resolving]
